FAERS Safety Report 5497939-5 (Version None)
Quarter: 2007Q4

REPORT INFORMATION
  Report Type: 
  Country: None (occurrence: None)
  Receive Date: 20071025
  Receipt Date: 20071016
  Transmission Date: 20080405
  Serious: Yes (Other)
  Sender: FDA-Public Use
  Company Number: ZA-PFIZER INC-2007087932

PATIENT
  Age: 45 Year
  Sex: Male

DRUGS (9)
  1. CAVERJECT [Suspect]
     Indication: PERIPHERAL VASCULAR DISORDER
     Route: 042
     Dates: start: 20070922, end: 20070901
  2. ROCEPHIN [Suspect]
     Indication: PERIPHERAL VASCULAR DISORDER
     Route: 042
     Dates: start: 20070922, end: 20070901
  3. HEPARIN [Concomitant]
     Route: 042
  4. ASPIRIN [Concomitant]
  5. CLEXANE [Concomitant]
     Route: 042
  6. FLAMAZINE [Concomitant]
     Route: 061
  7. NEXIUM [Concomitant]
  8. LENTOGESIC [Concomitant]
  9. IMOVANE [Concomitant]

REACTIONS (2)
  - HEPATIC ENZYME INCREASED [None]
  - HEPATIC STEATOSIS [None]
